FAERS Safety Report 9447536 (Version 2)
Quarter: 2013Q3

REPORT INFORMATION
  Report Type: Spontaneous
  Country: US (occurrence: US)
  Receive Date: 20130808
  Receipt Date: 20130903
  Transmission Date: 20140515
  Serious: Yes (Other)
  Sender: FDA-Public Use
  Company Number: US-ASTRAZENECA-2013SE58999

PATIENT
  Age: 73 Year
  Sex: Female
  Weight: 88 kg

DRUGS (12)
  1. ARIMIDEX [Suspect]
     Indication: BREAST CANCER STAGE I
     Route: 048
     Dates: start: 20120613
  2. CENTRUM SILVER [Concomitant]
     Indication: VITAMIN SUPPLEMENTATION
  3. CITRACAL [Concomitant]
     Indication: VITAMIN SUPPLEMENTATION
     Dosage: 200 MG/ 250 IU DAILY
  4. VITAMIN E [Concomitant]
     Indication: BREAST PAIN
     Dates: end: 20130703
  5. LOVENOX [Concomitant]
  6. VITAMIN B COMPLEX-C [Concomitant]
     Route: 048
  7. OYSTERSHELL CALCIUM [Concomitant]
     Route: 048
  8. VITAMIN B6 [Concomitant]
     Route: 048
  9. VITAMIN C [Concomitant]
     Route: 048
  10. ALPH-E [Concomitant]
     Route: 048
  11. XARELTO [Concomitant]
     Dosage: FOR 21 DAYS
  12. XARELTO [Concomitant]

REACTIONS (21)
  - Breast cancer in situ [Unknown]
  - Deep vein thrombosis [Recovering/Resolving]
  - Pain in extremity [Unknown]
  - Dysstasia [Unknown]
  - Phlebitis [Unknown]
  - Stress [Unknown]
  - Thrombosis [Unknown]
  - Seasonal allergy [Unknown]
  - Sinusitis [Unknown]
  - Rhinitis allergic [Unknown]
  - Discomfort [Unknown]
  - Anxiety [Unknown]
  - Hypertension [Unknown]
  - Migraine [Unknown]
  - Raynaud^s phenomenon [Unknown]
  - Trichomoniasis [Unknown]
  - Spinal osteoarthritis [Unknown]
  - Paraesthesia [Unknown]
  - Joint swelling [Unknown]
  - Arthritis [Unknown]
  - Hypersensitivity [Unknown]
